FAERS Safety Report 5724830-9 (Version None)
Quarter: 2008Q2

REPORT INFORMATION
  Report Type: 
  Country: None (occurrence: None)
  Receive Date: 20080501
  Receipt Date: 20080426
  Transmission Date: 20081010
  Serious: Yes (Other)
  Sender: FDA-Public Use
  Company Number: GB-ROCHE-561191

PATIENT
  Sex: Female
  Weight: 98.4 kg

DRUGS (6)
  1. ORLISTAT [Suspect]
     Indication: OBESITY
     Route: 048
     Dates: start: 20070908
  2. VOLTAREN [Concomitant]
     Indication: PAIN
     Route: 048
     Dates: start: 19780101
  3. TRAMADOL HCL [Concomitant]
     Indication: PAIN
     Dosage: 6 TABLETS A DAY
     Route: 048
     Dates: start: 19780101
  4. DIXARIT [Concomitant]
     Dosage: FOR HRT REPLACEMENT
     Route: 048
  5. NULYTELY [Concomitant]
     Indication: CONSTIPATION
     Route: 048
  6. NULYTELY [Concomitant]
     Route: 048

REACTIONS (1)
  - HYPOTHYROIDISM [None]
